FAERS Safety Report 5936672-X (Version None)
Quarter: 2008Q4

REPORT INFORMATION
  Report Type: 
  Country: None (occurrence: None)
  Receive Date: 20081030
  Receipt Date: 20081020
  Transmission Date: 20090506
  Serious: Yes (Death, Other)
  Sender: FDA-Public Use
  Company Number: AU-ELI_LILLY_AND_COMPANY-AU200810004350

PATIENT
  Age: 75 Year
  Sex: Female

DRUGS (2)
  1. EVISTA [Suspect]
     Dosage: 60 MG, UNKNOWN
     Route: 065
  2. ANTIHYPERTENSIVES [Concomitant]
     Dosage: UNK, UNKNOWN
     Route: 065

REACTIONS (3)
  - CEREBROVASCULAR ACCIDENT [None]
  - DEATH [None]
  - DEEP VEIN THROMBOSIS [None]
